FAERS Safety Report 8432586-4 (Version None)
Quarter: 2012Q2

REPORT INFORMATION
  Report Type: 
  Country: None (occurrence: None)
  Receive Date: 20120613
  Receipt Date: 20120605
  Transmission Date: 20120825
  Serious: Yes (Hospitalization)
  Sender: FDA-Public Use
  Company Number: US-AMGEN-USASP2012035106

PATIENT
  Age: 64 Year
  Sex: Female

DRUGS (1)
  1. ENBREL [Suspect]
     Indication: RHEUMATOID ARTHRITIS
     Dosage: 50 MG, QWK
     Dates: start: 19991001, end: 20060101

REACTIONS (9)
  - EYE INJURY [None]
  - RHEUMATOID ARTHRITIS [None]
  - ONYCHOMYCOSIS [None]
  - PNEUMONIA [None]
  - CATARACT [None]
  - INCISION SITE COMPLICATION [None]
  - PYREXIA [None]
  - OCULAR HYPERAEMIA [None]
  - AORTIC ANEURYSM [None]
